FAERS Safety Report 17618437 (Version 1)
Quarter: 2020Q2

REPORT INFORMATION
  Report Type: Spontaneous
  Country: US (occurrence: US)
  Receive Date: 20200402
  Receipt Date: 20200402
  Transmission Date: 20200713
  Serious: No
  Sender: FDA-Public Use
  Company Number: US-BAUSCH-BL-2020-006712

PATIENT
  Sex: Female

DRUGS (1)
  1. LUMIFY [Suspect]
     Active Substance: BRIMONIDINE TARTRATE
     Indication: OCULAR HYPERAEMIA
     Dosage: AS NEEDED; USED LUMIFY ONLY 5-6 TIMES
     Route: 047
     Dates: start: 202001, end: 20200227

REACTIONS (2)
  - Ocular hyperaemia [Not Recovered/Not Resolved]
  - Rebound effect [Not Recovered/Not Resolved]

NARRATIVE: CASE EVENT DATE: 202001
